FAERS Safety Report 25930783 (Version 2)
Quarter: 2025Q4

REPORT INFORMATION
  Report Type: Spontaneous
  Country: US (occurrence: US)
  Receive Date: 20251016
  Receipt Date: 20251029
  Transmission Date: 20260118
  Serious: Yes (Other)
  Sender: APELLIS PHARMACEUTICALS
  Company Number: US-APELLIS-2025-APL-0001889

PATIENT
  Weight: 63.503 kg

DRUGS (3)
  1. SYFOVRE [Suspect]
     Active Substance: PEGCETACOPLAN
     Indication: Age-related macular degeneration
     Dosage: UNKNOWN (OS)
     Route: 031
     Dates: start: 20250922
  2. SYFOVRE [Suspect]
     Active Substance: PEGCETACOPLAN
     Dosage: (OS)
     Dates: start: 20250811
  3. VABYSMO [Concomitant]
     Active Substance: FARICIMAB-SVOA
     Indication: Age-related macular degeneration
     Dosage: ON LEFT EYE
     Dates: start: 20250820

REACTIONS (3)
  - Uveitis [Not Recovered/Not Resolved]
  - Vitritis [Not Recovered/Not Resolved]
  - Cystoid macular oedema [Not Recovered/Not Resolved]

NARRATIVE: CASE EVENT DATE: 20250930
